FAERS Safety Report 24420486 (Version 2)
Quarter: 2024Q4

REPORT INFORMATION
  Report Type: Spontaneous
  Country: MY (occurrence: MY)
  Receive Date: 20241010
  Receipt Date: 20241018
  Transmission Date: 20250115
  Serious: No
  Sender: ROCHE
  Company Number: MY-BoehringerIngelheim-2024-BI-022698

PATIENT
  Age: 69 Year
  Sex: Male

DRUGS (1)
  1. ALTEPLASE [Suspect]
     Active Substance: ALTEPLASE
     Indication: Ischaemic stroke
     Dosage: TOTAL 49 ML INFUSED AND LEFT 18 ML TO BE INFUSED. 0.9MG/KG TOTAL 64MG
     Route: 065

REACTIONS (1)
  - Gingival bleeding [Unknown]
